FAERS Safety Report 7244362-9 (Version None)
Quarter: 2011Q1

REPORT INFORMATION
  Report Type: 
  Country: None (occurrence: None)
  Receive Date: 20110119
  Receipt Date: 20110119
  Transmission Date: 20110831
  Serious: Yes (Hospitalization)
  Sender: FDA-Public Use
  Company Number: None

PATIENT
  Sex: Female

DRUGS (1)
  1. RECLAST [Suspect]
     Indication: OSTEOPOROSIS
     Dosage: 1 DOSE -- IV ONCE IV
     Route: 042

REACTIONS (5)
  - RIGHT VENTRICULAR FAILURE [None]
  - INFLUENZA LIKE ILLNESS [None]
  - UPPER LIMB FRACTURE [None]
  - FALL [None]
  - PANCYTOPENIA [None]
